FAERS Safety Report 7937630-6 (Version None)
Quarter: 2011Q4

REPORT INFORMATION
  Report Type: 
  Country: None (occurrence: None)
  Receive Date: 20111123
  Receipt Date: 20111117
  Transmission Date: 20120403
  Serious: Yes (Hospitalization)
  Sender: FDA-Public Use
  Company Number: JP-BAYER-2011-107184

PATIENT
  Age: 66 Year
  Sex: Female
  Weight: 52 kg

DRUGS (7)
  1. AMITRIPTYLINE HCL [Concomitant]
     Dosage: DAILY DOSE 10 MG
     Route: 048
     Dates: start: 20110218, end: 20111031
  2. VALACYCLOVIR HYDROCHLORIDE [Concomitant]
     Indication: HERPES ZOSTER
     Dosage: UNK
     Route: 048
  3. LYRICA [Concomitant]
     Indication: HERPES ZOSTER
     Dosage: UNK
     Route: 048
     Dates: start: 20110309
  4. GABAPENTIN [Concomitant]
     Dosage: DAILY DOSE 400 MG
     Route: 048
     Dates: start: 20110228, end: 20110308
  5. PREGABALIN [Concomitant]
     Indication: HERPES ZOSTER
     Dosage: UNK
     Route: 048
  6. ASPIRIN [Suspect]
     Indication: THROMBOCYTOSIS
     Dosage: DAILY DOSE 100 MG
     Route: 048
     Dates: start: 20100607, end: 20110303
  7. HYDREA [Concomitant]
     Dosage: DAILY DOSE 500 MG
     Route: 048

REACTIONS (1)
  - INJECTION SITE HAEMATOMA [None]
